FAERS Safety Report 9780500 (Version 4)
Quarter: 2014Q1

REPORT INFORMATION
  Report Type: Spontaneous
  Country: JP (occurrence: JP)
  Receive Date: 20131224
  Receipt Date: 20140110
  Transmission Date: 20141002
  Serious: Yes (Hospitalization, Other)
  Sender: FDA-Public Use
  Company Number: JP-MERCK-1307JPN010963

PATIENT
  Age: 86 Year
  Sex: Female

DRUGS (1)
  1. BONALON [Suspect]
     Indication: OSTEOPOROSIS
     Dosage: 35 MG, QW
     Route: 048
     Dates: start: 2006, end: 201207

REACTIONS (2)
  - Atypical femur fracture [Recovered/Resolved]
  - Intramedullary rod insertion [Recovering/Resolving]
